FAERS Safety Report 7012803-8 (Version None)
Quarter: 2010Q3

REPORT INFORMATION
  Report Type: 
  Country: None (occurrence: None)
  Receive Date: 20100924
  Receipt Date: 20100917
  Transmission Date: 20110219
  Serious: Yes (Death, Life-Threatening, Hospitalization, Disabling)
  Sender: FDA-Public Use
  Company Number: B0656651A

PATIENT
  Sex: Male
  Weight: 104.5 kg

DRUGS (14)
  1. MARAVIROC [Suspect]
     Indication: HIV INFECTION
     Dosage: 300MG TWICE PER DAY
     Route: 048
     Dates: start: 20050707
  2. TRUVADA [Suspect]
     Indication: HIV INFECTION
     Route: 048
     Dates: start: 20090831, end: 20100415
  3. BISPHOSPHONATES (NOS) [Suspect]
     Dates: start: 20040813, end: 20100416
  4. METFORMIN [Concomitant]
     Route: 048
     Dates: start: 20010401, end: 20100416
  5. KAPANOL [Concomitant]
     Route: 048
     Dates: start: 20071017, end: 20100416
  6. GEMFIBROZIL [Concomitant]
     Route: 048
     Dates: start: 20060101, end: 20100416
  7. BACTRIM [Concomitant]
     Route: 048
     Dates: start: 20100104, end: 20100416
  8. KARVEZIDE [Concomitant]
     Route: 048
     Dates: start: 20091122, end: 20100416
  9. PERINDOPRIL ERBUMINE [Concomitant]
     Route: 048
     Dates: start: 20091122, end: 20100416
  10. FISH OIL [Concomitant]
     Route: 048
     Dates: start: 20051114
  11. LENALIDOMIDE [Concomitant]
  12. LAMIVUDINE-HIV [Concomitant]
     Dates: start: 20100424
  13. AZT [Concomitant]
     Dates: start: 20100430
  14. RALTEGRAVIR [Concomitant]
     Dates: start: 20100430

REACTIONS (1)
  - RENAL FAILURE ACUTE [None]
